FAERS Safety Report 9363594 (Version 1)
Quarter: 2013Q2

REPORT INFORMATION
  Report Type: Spontaneous
  Country: JP (occurrence: JP)
  Receive Date: 20130624
  Receipt Date: 20130624
  Transmission Date: 20140414
  Serious: Yes (Death, Other)
  Sender: FDA-Public Use
  Company Number: PHHY2013JP062881

PATIENT
  Sex: Female

DRUGS (9)
  1. IMATINIB [Suspect]
     Indication: LEUKAEMIA
     Dosage: 230 MG/M2,
  2. IMATINIB [Suspect]
     Dosage: 300 MG/M2
  3. PREDNISOLONE [Suspect]
     Indication: LEUKAEMIA
     Dosage: UNK UKN, UNK
  4. VINCRISTINE [Suspect]
     Indication: LEUKAEMIA
     Dosage: UNK UKN, UNK
  5. CYTARABINE [Suspect]
     Indication: LEUKAEMIA
     Dosage: UNK UKN, UNK
  6. ETOPOSIDE [Suspect]
     Indication: LEUKAEMIA
     Dosage: UNK UKN, UNK
  7. TACROLIMUS [Suspect]
     Indication: LEUKAEMIA
  8. L-ASPARAGINASE [Suspect]
     Indication: LEUKAEMIA
     Dosage: UNK UKN, UNK
  9. DAUNORUBICIN [Suspect]
     Indication: LEUKAEMIA
     Dosage: UNK UKN, UNK

REACTIONS (3)
  - Death [Fatal]
  - Acute graft versus host disease in skin [Unknown]
  - Blast cells present [Unknown]
